FAERS Safety Report 25370121 (Version 2)
Quarter: 2025Q4

REPORT INFORMATION
  Report Type: Spontaneous
  Country: JP (occurrence: JP)
  Receive Date: 20250528
  Receipt Date: 20251008
  Transmission Date: 20260117
  Serious: Yes (Death, Hospitalization)
  Sender: MERCK SHARP & DOHME LLC
  Company Number: JP-009507513-2260721

PATIENT
  Age: 9 Decade
  Sex: Male

DRUGS (1)
  1. KEYTRUDA [Suspect]
     Active Substance: PEMBROLIZUMAB
     Indication: Non-small cell lung cancer stage IV
     Dosage: 200 MG ONCE EVERY 3 WEEKS (1 COURSE)?PATIENT ROA: REPORTED AS INTRAVENOUS DRIP
     Route: 041
     Dates: start: 202412, end: 202412

REACTIONS (2)
  - Marasmus [Fatal]
  - Immune-mediated nephritis [Recovered/Resolved]
